FAERS Safety Report 5221699-6 (Version None)
Quarter: 2007Q1

REPORT INFORMATION
  Report Type: 
  Country: None (occurrence: None)
  Receive Date: 20070126
  Receipt Date: 20070126
  Transmission Date: 20070707
  Serious: Yes (Hospitalization)
  Sender: FDA-Public Use
  Company Number: None

PATIENT
  Sex: Male
  Weight: 92.5338 kg

DRUGS (2)
  1. DOCETAXEL [Suspect]
     Indication: NEOPLASM MALIGNANT
     Dosage: 155 MG IV/ EVERY 3 WEEKS
     Route: 042
     Dates: start: 20070116
  2. CISPLATIN [Suspect]
     Indication: NEOPLASM MALIGNANT
     Dosage: 155 MG IV EVERY 3 WEEKS
     Route: 042
     Dates: start: 20070116

REACTIONS (1)
  - FEBRILE NEUTROPENIA [None]
